FAERS Safety Report 10338012 (Version 2)
Quarter: 2014Q3

REPORT INFORMATION
  Report Type: Spontaneous
  Country: US (occurrence: US)
  Receive Date: 20140724
  Receipt Date: 20140724
  Transmission Date: 20150326
  Serious: No
  Sender: FDA-Public Use
  Company Number: US-UNITED THERAPEUTICS-UTC-047372

PATIENT
  Sex: Female
  Weight: 68.27 kg

DRUGS (4)
  1. REMODULIN [Suspect]
     Active Substance: TREPROSTINIL
     Dosage: 0.0405 UG/KG/MIN, CONTINUING
     Route: 041
     Dates: start: 20131125
  2. REVATIO [Concomitant]
     Active Substance: SILDENAFIL CITRATE
  3. OPSUMIT [Suspect]
     Active Substance: MACITENTAN
     Indication: PRODUCT USED FOR UNKNOWN INDICATION
  4. COUMADIN [Concomitant]
     Active Substance: WARFARIN SODIUM

REACTIONS (15)
  - Chills [Unknown]
  - Dyspnoea [Unknown]
  - Chest pain [Unknown]
  - Vomiting [Unknown]
  - Mass [Unknown]
  - Nausea [Unknown]
  - Arthralgia [Unknown]
  - Diarrhoea [Unknown]
  - Abdominal discomfort [Unknown]
  - Malaise [Unknown]
  - Hyperhidrosis [Unknown]
  - Headache [Unknown]
  - Pulmonary arterial hypertension [Unknown]
  - Decreased appetite [Unknown]
  - Cardiac flutter [Unknown]
